FAERS Safety Report 7332929-9 (Version None)
Quarter: 2011Q1

REPORT INFORMATION
  Report Type: 
  Country: None (occurrence: None)
  Receive Date: 20110304
  Receipt Date: 20110223
  Transmission Date: 20110831
  Serious: Yes (Other)
  Sender: FDA-Public Use
  Company Number: CHPA2011US03373

PATIENT
  Age: 71 Year
  Sex: Male

DRUGS (2)
  1. PREVACID 24 HR [Suspect]
     Dosage: UNK
     Route: 048
     Dates: start: 20100101
  2. PREVACID [Suspect]
     Dosage: UNK
     Route: 048
     Dates: start: 20100101, end: 20100101

REACTIONS (5)
  - HIP FRACTURE [None]
  - OSTEOPOROSIS [None]
  - DRUG ADMINISTRATION ERROR [None]
  - OVERDOSE [None]
  - GLAUCOMA [None]
